FAERS Safety Report 9908238 (Version 1)
Quarter: 2014Q1

REPORT INFORMATION
  Report Type: Spontaneous
  Country: US (occurrence: None)
  Receive Date: 20140211
  Receipt Date: 20140211
  Transmission Date: 20141002
  Serious: Yes (Other)
  Sender: FDA-Public Use
  Company Number: SYM-2014-17010

PATIENT
  Age: 42 Year
  Sex: Male

DRUGS (2)
  1. WELLBUTRIN XL [Suspect]
     Dosage: 300MG 1 IN 1D, ORAL
     Route: 048
     Dates: start: 20140126
  2. CELEXA (CITALOPRAM HYDROBROMIDE) (CITALOPRAM HYDROBROMIDE) [Concomitant]

REACTIONS (8)
  - Chest discomfort [None]
  - Feeling abnormal [None]
  - Agitation [None]
  - Nervousness [None]
  - Anxiety [None]
  - Crying [None]
  - Tremor [None]
  - Throat tightness [None]
